FAERS Safety Report 8916712 (Version 1)
Quarter: 2012Q4

REPORT INFORMATION
  Report Type: 
  Country: US (occurrence: US)
  Receive Date: 20121120
  Receipt Date: 20121120
  Transmission Date: 20130627
  Serious: Yes (Hospitalization)
  Sender: FDA-Public Use
  Company Number: US-BAYER-2012-118956

PATIENT
  Age: 23 Year
  Sex: Female

DRUGS (3)
  1. YAZ [Suspect]
     Dosage: UNK
     Dates: start: 20101019, end: 20110726
  2. LIDOCAINE [Concomitant]
     Route: 061
  3. FLONASE [Concomitant]
     Route: 045

REACTIONS (2)
  - Cerebrovascular accident [None]
  - Paraesthesia [None]
